FAERS Safety Report 21386581 (Version 1)
Quarter: 2022Q3

REPORT INFORMATION
  Report Type: Spontaneous
  Country: CN (occurrence: CN)
  Receive Date: 20220928
  Receipt Date: 20220928
  Transmission Date: 20221026
  Serious: Yes (Hospitalization, Other)
  Sender: FDA-Public Use
  Company Number: CN-GLAXOSMITHKLINE-CN2022APC136612

PATIENT

DRUGS (9)
  1. VENTOLIN [Suspect]
     Active Substance: ALBUTEROL SULFATE
     Indication: Cough
     Dosage: 2.5 ML,  [5MG]
     Route: 055
  2. VENTOLIN [Suspect]
     Active Substance: ALBUTEROL SULFATE
     Dosage: 1.25 ML, TID
     Route: 055
  3. ATROVENT [Suspect]
     Active Substance: IPRATROPIUM BROMIDE
     Indication: Cough
     Dosage: 2 ML, 500UG, SOLUTION FOR INHALATION
  4. DOXOFYLLINE [Concomitant]
     Active Substance: DOXOFYLLINE
     Indication: Cough
     Dosage: 0.2 G, INJECTION
     Route: 042
  5. TANREQING [Concomitant]
     Indication: Cough
     Dosage: 30 ML, INJECTION
     Route: 042
  6. AZITHROMYCIN ANHYDROUS [Concomitant]
     Active Substance: AZITHROMYCIN ANHYDROUS
     Indication: Cough
     Dosage: 0.5 G, INJECTION
     Route: 042
  7. ISOSORBIDE MONONITRATE [Concomitant]
     Active Substance: ISOSORBIDE MONONITRATE
     Indication: Cough
     Dosage: 25 MG, INJECTION ADDED TO 50 ML OF 5% GLUCOSE
     Route: 042
  8. DEXTROSE [Concomitant]
     Active Substance: DEXTROSE
     Indication: Cough
     Dosage: 5 %, 50 ML INJECTION
     Route: 042
  9. BUDESONIDE [Concomitant]
     Active Substance: BUDESONIDE
     Indication: Cough
     Dosage: 1 MG, SUSPENSION FOR INHALATION
     Route: 055

REACTIONS (13)
  - Angle closure glaucoma [Unknown]
  - Conjunctivitis [Unknown]
  - Headache [Recovered/Resolved]
  - Discomfort [Recovered/Resolved]
  - Nausea [Recovered/Resolved]
  - Conjunctival hyperaemia [Unknown]
  - Corneal opacity [Unknown]
  - Entropion [Unknown]
  - Trichiasis [Unknown]
  - Corneal oedema [Unknown]
  - Cataract [Unknown]
  - Vision blurred [Not Recovered/Not Resolved]
  - Mydriasis [Recovered/Resolved]
